FAERS Safety Report 7168164-7 (Version None)
Quarter: 2010Q4

REPORT INFORMATION
  Report Type: 
  Country: None (occurrence: None)
  Receive Date: 20101216
  Receipt Date: 20101208
  Transmission Date: 20110411
  Serious: Yes (Death)
  Sender: FDA-Public Use
  Company Number: FR-BAXTER-2010BH029816

PATIENT
  Age: 32 Year
  Sex: Female

DRUGS (8)
  1. SUPRANE [Suspect]
     Indication: ANAESTHESIA
     Route: 055
     Dates: start: 19990723, end: 19990723
  2. APACEF [Suspect]
     Indication: PROPHYLAXIS
     Route: 042
     Dates: start: 19990723, end: 19990723
  3. DIPRIVAN [Suspect]
     Indication: ANAESTHESIA
     Route: 042
     Dates: start: 19990723, end: 19990723
  4. TRACRIUM [Suspect]
     Indication: ANAESTHESIA
     Route: 042
     Dates: start: 19990723, end: 19990723
  5. ULTIVA [Suspect]
     Indication: ANAESTHESIA
     Route: 042
     Dates: start: 19990723, end: 19990723
  6. HYDROXYZINE [Suspect]
     Indication: PREMEDICATION
     Route: 048
     Dates: start: 19990723, end: 19990723
  7. XANAX [Concomitant]
     Indication: PRODUCT USED FOR UNKNOWN INDICATION
     Route: 065
  8. RANITIDINE HCL [Concomitant]
     Indication: PRODUCT USED FOR UNKNOWN INDICATION
     Route: 065

REACTIONS (1)
  - ANAPHYLACTIC SHOCK [None]
